FAERS Safety Report 10206598 (Version 1)
Quarter: 2014Q2

REPORT INFORMATION
  Report Type: Spontaneous
  Country: US (occurrence: US)
  Receive Date: 20140530
  Receipt Date: 20140530
  Transmission Date: 20141212
  Serious: No
  Sender: FDA-Public Use
  Company Number: US-GLAXOSMITHKLINE-A1052312A

PATIENT
  Sex: Female

DRUGS (4)
  1. FLOLAN [Suspect]
     Indication: PULMONARY ARTERIAL HYPERTENSION
     Dosage: 45.5NGKM CONTINUOUS
     Route: 042
     Dates: start: 20110924
  2. LETAIRIS [Concomitant]
  3. REVATIO [Concomitant]
  4. WARFARIN [Concomitant]

REACTIONS (1)
  - Injection site erythema [Unknown]
